FAERS Safety Report 21165671 (Version 1)
Quarter: 2022Q3

REPORT INFORMATION
  Report Type: Spontaneous
  Country: US (occurrence: None)
  Receive Date: 20220802
  Receipt Date: 20220802
  Transmission Date: 20221026
  Serious: No
  Sender: FDA-Public Use
  Company Number: None

PATIENT
  Age: 72 Year
  Sex: Female
  Weight: 47.25 kg

DRUGS (13)
  1. REVLIMID [Suspect]
     Active Substance: LENALIDOMIDE
     Indication: Plasma cell myeloma
     Dosage: OTHER FREQUENCY : 21 ON/7 OFF;?
     Route: 048
  2. acyclovir 400 mg table [Concomitant]
  3. ALENDRONATE SODIUM [Concomitant]
     Active Substance: ALENDRONATE SODIUM
  4. CEPHALEXIN [Concomitant]
     Active Substance: CEPHALEXIN
  5. CIPROFLOXACIN HYDROCHLORI 500MG TAB [Concomitant]
  6. Compazine 10 mg tablet [Concomitant]
  7. FLUOXETINE HCL 20MG CAP [Concomitant]
  8. LEVOCETIRIZINE DIHYDROCHL 5MG TAB [Concomitant]
  9. loperamide 2 mg tablet [Concomitant]
  10. lorazepam 1 mg tablet [Concomitant]
  11. ondansetron 8 mg disintegrating tablet [Concomitant]
  12. tramadol 50 mg tablet [Concomitant]
  13. VALACYCLOVIR HYDROCHLORIDE [Concomitant]
     Active Substance: VALACYCLOVIR HYDROCHLORIDE

REACTIONS (1)
  - Neuropathy peripheral [None]

NARRATIVE: CASE EVENT DATE: 20220801
